FAERS Safety Report 25341493 (Version 1)
Quarter: 2025Q2

REPORT INFORMATION
  Report Type: Spontaneous
  Country: US (occurrence: US)
  Receive Date: 20250521
  Receipt Date: 20250521
  Transmission Date: 20250717
  Serious: No
  Sender: BRISTOL-MYERS SQUIBB COMPANY
  Company Number: US-BRISTOL-MYERS SQUIBB COMPANY-2025-073188

PATIENT
  Sex: Female

DRUGS (2)
  1. COBENFY [Suspect]
     Active Substance: TROSPIUM CHLORIDE\XANOMELINE
     Indication: Schizophrenia
     Dosage: DOSE: 50 MG/20 MG
     Route: 048
     Dates: start: 2025
  2. COBENFY [Suspect]
     Active Substance: TROSPIUM CHLORIDE\XANOMELINE
     Dosage: DOSE: 100 MG/20 MG
     Route: 048
     Dates: start: 2025

REACTIONS (2)
  - Feeling jittery [Unknown]
  - Muscle twitching [Unknown]

NARRATIVE: CASE EVENT DATE: 20250101
